FAERS Safety Report 17119380 (Version 1)
Quarter: 2019Q4

REPORT INFORMATION
  Report Type: Spontaneous
  Country: US (occurrence: US)
  Receive Date: 20191206
  Receipt Date: 20191206
  Transmission Date: 20200122
  Serious: No
  Sender: FDA-Public Use
  Company Number: US-009507513-1912USA001110

PATIENT
  Sex: Male

DRUGS (1)
  1. MAXALT-MLT [Suspect]
     Active Substance: RIZATRIPTAN BENZOATE
     Dosage: 6X3UU, 1 TABLET AS NEEDED
     Route: 048

REACTIONS (2)
  - Product dose omission [Unknown]
  - Migraine [Unknown]
